FAERS Safety Report 9025350 (Version 1)
Quarter: 2012Q4

REPORT INFORMATION
  Report Type: 
  Country: NL (occurrence: NL)
  Receive Date: 20121211
  Receipt Date: 20121211
  Transmission Date: 20130627
  Serious: Yes (Other)
  Sender: FDA-Public Use
  Company Number: PHHY2012NL102158

PATIENT
  Age: 76 Year
  Sex: Female

DRUGS (4)
  1. ZOMETA [Suspect]
     Indication: METASTASIS
     Dosage: 4 mg/ 100ml once every 28 days at a rate of 320ml/h
     Route: 041
  2. ZOMETA [Suspect]
     Dosage: 4 mg/ 100ml once every 28 days at a rate of 320ml/h
     Route: 041
     Dates: start: 20120522
  3. ZOMETA [Suspect]
     Dosage: 4 mg/ 100ml once every 28 days at a rate of 320ml/h
     Route: 041
     Dates: start: 20121009
  4. ZOMETA [Suspect]
     Dosage: 4 mg/ 100ml once every 28 days at a rate of 320ml/h
     Route: 041
     Dates: start: 20121106, end: 20121206

REACTIONS (4)
  - Terminal state [Not Recovered/Not Resolved]
  - General physical health deterioration [Unknown]
  - Pallor [Not Recovered/Not Resolved]
  - Fatigue [Not Recovered/Not Resolved]
